FAERS Safety Report 5457556-X (Version None)
Quarter: 2007Q3

REPORT INFORMATION
  Report Type: 
  Country: None (occurrence: None)
  Receive Date: 20070918
  Receipt Date: 20070912
  Transmission Date: 20080115
  Serious: Yes (Hospitalization)
  Sender: FDA-Public Use
  Company Number: GB-ROXANE LABORATORIES, INC-2007-BP-20955BP

PATIENT
  Sex: Female
  Weight: 64.4 kg

DRUGS (6)
  1. BIBR 1048 (DABIGATRAN ETEXILATE) (PRETREATMENT) [Suspect]
     Indication: CEREBROVASCULAR ACCIDENT PROPHYLAXIS
  2. BIBR 1048 (DABIGATRAN ETEXILATE) (PRETREATMENT) [Suspect]
     Indication: THROMBOSIS PROPHYLAXIS
  3. PERINDOPRIL ERBUMINE [Suspect]
     Indication: HYPERTENSION
     Route: 048
  4. PERINDOPRIL ERBUMINE [Suspect]
     Indication: MYOCARDIAL INFARCTION
  5. FUROSEMIDE [Suspect]
     Indication: CARDIAC FAILURE CONGESTIVE
     Route: 048
  6. ATENOLOL [Suspect]
     Indication: MYOCARDIAL INFARCTION
     Route: 048

REACTIONS (2)
  - FALL [None]
  - HEAD INJURY [None]
